FAERS Safety Report 15311667 (Version 1)
Quarter: 2018Q3

REPORT INFORMATION
  Report Type: Spontaneous
  Country: US (occurrence: US)
  Receive Date: 20180823
  Receipt Date: 20180823
  Transmission Date: 20181010
  Serious: No
  Sender: FDA-Public Use
  Company Number: US-COLLEGIUM PHARMACEUTICAL, INC.-2018CGM00226

PATIENT
  Sex: Male

DRUGS (3)
  1. XTAMPZA ER [Suspect]
     Active Substance: OXYCODONE
     Indication: PAIN
     Dosage: 18 MG, 2X/DAY
     Route: 048
     Dates: start: 2018, end: 2018
  2. XTAMPZA ER [Suspect]
     Active Substance: OXYCODONE
     Dosage: 13.5 MG, 2X/DAY
     Route: 048
     Dates: start: 2018
  3. XTAMPZA ER [Suspect]
     Active Substance: OXYCODONE
     Indication: PAIN
     Dosage: 13.5 MG, 2X/DAY
     Route: 048
     Dates: start: 201805, end: 2018

REACTIONS (2)
  - Nausea [Unknown]
  - Product substitution issue [Not Recovered/Not Resolved]

NARRATIVE: CASE EVENT DATE: 2018
